FAERS Safety Report 9821672 (Version 1)
Quarter: 2014Q1

REPORT INFORMATION
  Report Type: Spontaneous
  Country: US (occurrence: US)
  Receive Date: 20140116
  Receipt Date: 20140116
  Transmission Date: 20141002
  Serious: No
  Sender: FDA-Public Use
  Company Number: US-BIOGENIDEC-2014BI003245

PATIENT
  Age: 43 Year
  Sex: Female

DRUGS (9)
  1. TECFIDERA [Suspect]
     Indication: MULTIPLE SCLEROSIS
     Route: 048
     Dates: start: 20131028, end: 20131104
  2. TECFIDERA [Suspect]
     Indication: MULTIPLE SCLEROSIS
     Route: 048
     Dates: start: 20131104
  3. ALBUTEROL [Concomitant]
  4. ORTHO-NOVUM 7/7/7 [Concomitant]
  5. ZOLOFT [Concomitant]
  6. NEURONTIN [Concomitant]
  7. VITAMIN C [Concomitant]
  8. TYLENOL [Concomitant]
  9. COLACE [Concomitant]

REACTIONS (3)
  - Dysgeusia [Not Recovered/Not Resolved]
  - Decreased appetite [Not Recovered/Not Resolved]
  - Abdominal discomfort [Not Recovered/Not Resolved]
